FAERS Safety Report 8021992-8 (Version None)
Quarter: 2012Q1

REPORT INFORMATION
  Report Type: 
  Country: None (occurrence: None)
  Receive Date: 20120104
  Receipt Date: 20111223
  Transmission Date: 20120608
  Serious: Yes (Hospitalization, Other)
  Sender: FDA-Public Use
  Company Number: US-ELI_LILLY_AND_COMPANY-US201108001540

PATIENT
  Sex: Female
  Weight: 62.6 kg

DRUGS (32)
  1. VITAMIN B-12 [Concomitant]
  2. CALCIUM ACETATE [Concomitant]
     Dosage: UNK
     Dates: start: 20111214
  3. MYOFLEX [Concomitant]
     Dosage: UNK, PRN
  4. CEFIXIME [Concomitant]
     Dosage: UNK
     Dates: start: 20111214
  5. ASMANEX TWISTHALER [Concomitant]
  6. FLONASE [Concomitant]
     Dosage: UNK, BID
  7. HYDROCHLOROTHIAZIDE [Concomitant]
     Dosage: 12.5 MG, UNK
  8. CALTRATE + D [Concomitant]
     Dosage: UNK, BID
  9. FISH OIL [Concomitant]
     Dosage: 1000 MG, UNK
  10. FLECTOR                            /00372302/ [Concomitant]
  11. ARICEPT [Concomitant]
  12. CYCLOBENZAPRINE [Concomitant]
  13. FORTEO [Suspect]
     Indication: OSTEOPOROSIS
     Dosage: 20 UG, QD
     Route: 058
     Dates: start: 20110725, end: 20110725
  14. MICARDIS [Concomitant]
     Dosage: 80 MG, QD
  15. ASPIRIN [Concomitant]
     Dosage: 81 MG, QD
  16. DEXLANSOPRAZOLE [Concomitant]
     Dosage: 60 MG, UNK
  17. SINGULAIR [Concomitant]
     Dosage: 10 MG, QD
  18. MAGNESIUM CHELATE [Concomitant]
  19. VENTOLIN [Concomitant]
  20. SKELAXIN [Concomitant]
  21. TYLENOL (CAPLET) [Concomitant]
  22. IBUPROFEN [Concomitant]
  23. VITAMIN D [Concomitant]
     Dosage: 62000 U, QD
  24. GLUCOSAMINE SULFATE [Concomitant]
     Dosage: 2 DF, QD
  25. MV [Concomitant]
     Dosage: UNK, QD
  26. MINERALS NOS [Concomitant]
     Dosage: UNK, QD
  27. SPIRIVA [Concomitant]
  28. VICODIN [Concomitant]
  29. MIACALCIN [Concomitant]
     Dosage: UNK
     Dates: start: 20111214
  30. TOPROL-XL [Concomitant]
     Dosage: 50 MG, QD
  31. CETIRIZINE [Concomitant]
     Dosage: 10 MG, UNK
  32. ASPIRIN [Concomitant]

REACTIONS (9)
  - PRESYNCOPE [None]
  - MUSCULOSKELETAL DISCOMFORT [None]
  - CHEST PAIN [None]
  - BACK PAIN [None]
  - DYSPNOEA [None]
  - POSTURE ABNORMAL [None]
  - BALANCE DISORDER [None]
  - LIMB DISCOMFORT [None]
  - HEART RATE INCREASED [None]
